FAERS Safety Report 10522899 (Version 2)
Quarter: 2014Q4

REPORT INFORMATION
  Report Type: Spontaneous
  Country: US (occurrence: US)
  Receive Date: 20141016
  Receipt Date: 20141016
  Transmission Date: 20150528
  Serious: Yes (Death, Hospitalization, Other)
  Sender: FDA-Public Use
  Company Number: US-GLAXOSMITHKLINE-B0725187A

PATIENT
  Sex: Male

DRUGS (1)
  1. AVANDIA [Suspect]
     Active Substance: ROSIGLITAZONE MALEATE
     Indication: DIABETES MELLITUS
     Route: 048
     Dates: end: 20040112

REACTIONS (9)
  - Pneumonia [Fatal]
  - Cardiac failure congestive [Unknown]
  - Cardiomegaly [Unknown]
  - Respiratory failure [Fatal]
  - Cardiac disorder [Unknown]
  - Pulmonary oedema [Unknown]
  - Myocardial infarction [Unknown]
  - Atrial fibrillation [Unknown]
  - Pleural effusion [Unknown]
